FAERS Safety Report 13022470 (Version 4)
Quarter: 2019Q3

REPORT INFORMATION
  Report Type: Report from Study
  Country: US (occurrence: US)
  Receive Date: 20161213
  Receipt Date: 20190911
  Transmission Date: 20191004
  Serious: Yes (Hospitalization)
  Sender: FDA-Public Use
  Company Number: US-EISAI MEDICAL RESEARCH-EC-2015-008399

PATIENT
  Age: 66 Year
  Sex: Female

DRUGS (6)
  1. LENVIMA [Suspect]
     Active Substance: LENVATINIB
     Indication: THYROID CANCER
     Route: 048
     Dates: start: 20150604, end: 2016
  2. LENVIMA [Suspect]
     Active Substance: LENVATINIB
     Route: 048
     Dates: start: 201611, end: 201704
  3. LENVIMA [Suspect]
     Active Substance: LENVATINIB
     Route: 048
     Dates: start: 201704, end: 2019
  4. LENVIMA [Suspect]
     Active Substance: LENVATINIB
     Route: 048
     Dates: start: 2019
  5. LISINOPRIL. [Concomitant]
     Active Substance: LISINOPRIL
  6. LENVIMA [Suspect]
     Active Substance: LENVATINIB
     Route: 048
     Dates: start: 2016, end: 201609

REACTIONS (18)
  - Decreased appetite [Not Recovered/Not Resolved]
  - Proteinuria [Recovered/Resolved]
  - Palmar-plantar erythrodysaesthesia syndrome [Not Recovered/Not Resolved]
  - Myalgia [Not Recovered/Not Resolved]
  - Pelvic prolapse [Unknown]
  - Asthenia [Recovering/Resolving]
  - Abdominal pain [Recovering/Resolving]
  - Fatigue [Recovered/Resolved]
  - Limb discomfort [Not Recovered/Not Resolved]
  - Nausea [Recovered/Resolved]
  - Back pain [Unknown]
  - Mass [Unknown]
  - Bone pain [Unknown]
  - Pulmonary mass [Unknown]
  - Epigastric discomfort [Not Recovered/Not Resolved]
  - Blood pressure increased [Not Recovered/Not Resolved]
  - Headache [Recovered/Resolved]
  - Duodenitis [Unknown]

NARRATIVE: CASE EVENT DATE: 201506
